FAERS Safety Report 4831267-3 (Version None)
Quarter: 2005Q4

REPORT INFORMATION
  Report Type: 
  Country: None (occurrence: None)
  Receive Date: 20051116
  Receipt Date: 20051116
  Transmission Date: 20060501
  Serious: No
  Sender: FDA-Public Use
  Company Number: None

PATIENT
  Age: 44 Year
  Sex: Female

DRUGS (1)
  1. XANAX [Suspect]
     Dosage: 1 TABLET 3 TIMES A DAY
     Dates: start: 20050921, end: 20051004

REACTIONS (6)
  - CHEST PAIN [None]
  - DIARRHOEA [None]
  - EYELID OEDEMA [None]
  - HEADACHE [None]
  - PHARMACEUTICAL PRODUCT COMPLAINT [None]
  - VISION BLURRED [None]
